FAERS Safety Report 12971795 (Version 2)
Quarter: 2017Q1

REPORT INFORMATION
  Report Type: Report from Study
  Country: FR (occurrence: FR)
  Receive Date: 20161124
  Receipt Date: 20170122
  Transmission Date: 20170428
  Serious: Yes (Other)
  Sender: FDA-Public Use
  Company Number: FR-AMGEN-FRASL2016164074

PATIENT
  Sex: Female

DRUGS (4)
  1. XGEVA [Suspect]
     Active Substance: DENOSUMAB
     Indication: PROPHYLAXIS
     Dosage: 120 MG, Q4WK
     Route: 058
     Dates: start: 20160818
  2. NEULASTA [Suspect]
     Active Substance: PEGFILGRASTIM
     Indication: WHITE BLOOD CELL COUNT DECREASED
     Dosage: 6 MG, UNK
     Route: 065
     Dates: start: 20161004
  3. VITAMIN D [Concomitant]
     Active Substance: CHOLECALCIFEROL
     Dosage: 400 IU, QD
     Dates: start: 20160818
  4. OROCAL [Concomitant]
     Active Substance: CALCIUM CARBONATE
     Dosage: 500 MG /EVEN DAY 1000 MG ODD DAY
     Dates: start: 20160818

REACTIONS (3)
  - Blood pressure increased [Recovered/Resolved]
  - White blood cell count decreased [Recovered/Resolved]
  - Osteonecrosis of jaw [Recovered/Resolved]

NARRATIVE: CASE EVENT DATE: 2016
